FAERS Safety Report 8232044-6 (Version None)
Quarter: 2012Q1

REPORT INFORMATION
  Report Type: 
  Country: None (occurrence: None)
  Receive Date: 20120323
  Receipt Date: 20120319
  Transmission Date: 20120608
  Serious: Yes (Other)
  Sender: FDA-Public Use
  Company Number: US-BRISTOL-MYERS SQUIBB COMPANY-16462897

PATIENT
  Age: 70 Year
  Sex: Female

DRUGS (4)
  1. TRAMADOL HCL [Concomitant]
  2. ORENCIA [Suspect]
     Dosage: 2ND INFUSION ON: 13DEC2011, 3RD INFUSION ON: 17DCE2011
     Dates: start: 20111127
  3. RECLAST [Concomitant]
     Indication: OSTEOPOROSIS
  4. ACETAMINOPHEN [Concomitant]

REACTIONS (6)
  - TREMOR [None]
  - JOINT EFFUSION [None]
  - CARDIAC DISORDER [None]
  - GLAUCOMA [None]
  - INFLUENZA [None]
  - CARPAL TUNNEL SYNDROME [None]
